FAERS Safety Report 10646934 (Version 1)
Quarter: 2014Q4

REPORT INFORMATION
  Report Type: Spontaneous
  Country: KR (occurrence: KR)
  Receive Date: 20141211
  Receipt Date: 20141211
  Transmission Date: 20150529
  Serious: Yes (Other)
  Sender: FDA-Public Use
  Company Number: KR-PERRIGO-14KR011810

PATIENT
  Age: 71 Year
  Sex: Female

DRUGS (5)
  1. IMIPENEM [Concomitant]
     Active Substance: IMIPENEM
     Indication: BACTERIAL INFECTION
     Dosage: 500 MG, Q6H
     Route: 042
  2. LEVOFLOXACIN. [Concomitant]
     Active Substance: LEVOFLOXACIN
     Indication: PNEUMONIA
     Route: 065
  3. MACROLIDES [Concomitant]
     Active Substance: UNSPECIFIED INGREDIENT
     Indication: BRONCHIECTASIS
     Route: 065
  4. PIPERACILLIN AND TAZOBACTAM [Concomitant]
     Active Substance: PIPERACILLIN SODIUM\TAZOBACTAM SODIUM
     Indication: PNEUMONIA
     Route: 065
  5. COLISTIMETHATE SODIUM RX 150 MG/VIAL 7N5 [Suspect]
     Active Substance: COLISTIMETHATE SODIUM
     Indication: BACTERIAL INFECTION
     Dosage: 2.5 MG/KG, Q12H
     Route: 042

REACTIONS (1)
  - Neuromuscular toxicity [Recovered/Resolved]
